FAERS Safety Report 13864687 (Version 1)
Quarter: 2017Q3

REPORT INFORMATION
  Report Type: Spontaneous
  Country: IN (occurrence: IN)
  Receive Date: 20170814
  Receipt Date: 20170814
  Transmission Date: 20171127
  Serious: Yes (Death, Hospitalization)
  Sender: FDA-Public Use
  Company Number: IN-STRIDES ARCOLAB LIMITED-2017SP011774

PATIENT

DRUGS (8)
  1. IBUPROFEN. [Suspect]
     Active Substance: IBUPROFEN
     Indication: ARTHRALGIA
     Dosage: UNK
     Route: 065
  2. TRIHEXYPHENIDYL [Suspect]
     Active Substance: TRIHEXYPHENIDYL
     Indication: ABNORMAL BEHAVIOUR
     Dosage: 6 MG, PER DAY
     Route: 065
  3. RISPERIDONE. [Suspect]
     Active Substance: RISPERIDONE
     Indication: SCHIZOPHRENIA
     Dosage: 6 MG, DAILY
     Route: 065
  4. CEFTRIAXONE. [Concomitant]
     Active Substance: CEFTRIAXONE
     Indication: PROPHYLAXIS
  5. HALOPERIDOL. [Suspect]
     Active Substance: HALOPERIDOL
     Indication: ABNORMAL BEHAVIOUR
     Dosage: 10 MG, PER DAY
     Route: 065
  6. CEFTRIAXONE. [Concomitant]
     Active Substance: CEFTRIAXONE
     Indication: STRESS ULCER
     Dosage: UNK
     Route: 065
  7. METRONIDAZOLE. [Concomitant]
     Active Substance: METRONIDAZOLE
     Indication: STRESS ULCER
     Dosage: UNK
     Route: 065
  8. METRONIDAZOLE. [Concomitant]
     Active Substance: METRONIDAZOLE
     Indication: PROPHYLAXIS

REACTIONS (8)
  - Large intestine perforation [Recovered/Resolved]
  - Intestinal obstruction [Recovered/Resolved]
  - Faecaloma [Recovered/Resolved]
  - Self-medication [Unknown]
  - Abdominal pain [Recovered/Resolved]
  - Respiratory disorder [Fatal]
  - Faeces hard [Recovered/Resolved]
  - Tachycardia [Recovered/Resolved]
